FAERS Safety Report 26112693 (Version 2)
Quarter: 2025Q4

REPORT INFORMATION
  Report Type: Spontaneous
  Country: US (occurrence: US)
  Receive Date: 20251202
  Receipt Date: 20251226
  Transmission Date: 20260118
  Serious: No
  Sender: JOHNSON AND JOHNSON
  Company Number: US-JNJFOC-20251161286

PATIENT
  Sex: Male

DRUGS (2)
  1. GUSELKUMAB [Suspect]
     Active Substance: GUSELKUMAB
     Indication: Psoriatic arthropathy
     Dosage: STRENGTH:100.00 MG/ML
  2. GUSELKUMAB [Suspect]
     Active Substance: GUSELKUMAB
     Indication: Psoriasis

REACTIONS (3)
  - Device deployment issue [Unknown]
  - Device delivery system issue [Unknown]
  - Product dose omission issue [Unknown]

NARRATIVE: CASE EVENT DATE: 20251117
